FAERS Safety Report 12873749 (Version 2)
Quarter: 2017Q1

REPORT INFORMATION
  Report Type: Report from Study
  Country: US (occurrence: US)
  Receive Date: 20161021
  Receipt Date: 20170103
  Transmission Date: 20170428
  Serious: Yes (Hospitalization)
  Sender: FDA-Public Use
  Company Number: US-TAKEDA-2016TUS018881

PATIENT
  Sex: Female
  Weight: 72.56 kg

DRUGS (1)
  1. VEDOLIZUMAB [Suspect]
     Active Substance: VEDOLIZUMAB
     Indication: CROHN^S DISEASE
     Dosage: 300 MG, UNK
     Route: 042
     Dates: start: 201602

REACTIONS (4)
  - Abscess [Recovering/Resolving]
  - Malaise [Unknown]
  - Fistula [Recovering/Resolving]
  - Ovarian cyst [Not Recovered/Not Resolved]
